FAERS Safety Report 10644740 (Version 2)
Quarter: 2015Q1

REPORT INFORMATION
  Report Type: Spontaneous
  Country: MX (occurrence: MX)
  Receive Date: 20141211
  Receipt Date: 20150319
  Transmission Date: 20150720
  Serious: Yes (Other)
  Sender: FDA-Public Use
  Company Number: MX-ROCHE-1506269

PATIENT
  Age: 51 Year
  Sex: Female

DRUGS (3)
  1. MIRCERA [Suspect]
     Active Substance: PEGZEREPOETIN ALFA
     Dosage: SECOND DOSE
     Route: 058
     Dates: start: 201410, end: 201410
  2. MIRCERA [Suspect]
     Active Substance: PEGZEREPOETIN ALFA
     Dosage: 3RD DOSE. LOT:H0545H13. EXPIRY DATE: -NOV-2015
     Route: 065
     Dates: start: 20141205, end: 20141205
  3. MIRCERA [Suspect]
     Active Substance: PEGZEREPOETIN ALFA
     Indication: ANAEMIA
     Dosage: ONE DOSE
     Route: 058
     Dates: start: 201204, end: 201204

REACTIONS (4)
  - Pneumonia [Recovered/Resolved]
  - Medication error [Unknown]
  - Anaemia [Not Recovered/Not Resolved]
  - Product quality issue [Unknown]

NARRATIVE: CASE EVENT DATE: 2014
